FAERS Safety Report 4821389-5 (Version None)
Quarter: 2005Q4

REPORT INFORMATION
  Report Type: 
  Country: None (occurrence: None)
  Receive Date: 20051107
  Receipt Date: 20051027
  Transmission Date: 20060501
  Serious: Yes (Death)
  Sender: FDA-Public Use
  Company Number: US-JNJFOC-20051005824

PATIENT
  Sex: Male

DRUGS (3)
  1. INFLIXIMAB [Suspect]
     Indication: RHEUMATOID ARTHRITIS
     Route: 042
  2. VIOXX [Concomitant]
  3. PREDNISONE [Concomitant]

REACTIONS (3)
  - ACUTE RESPIRATORY FAILURE [None]
  - FELTY'S SYNDROME [None]
  - RENAL FAILURE [None]
